FAERS Safety Report 23500844 (Version 1)
Quarter: 2024Q1

REPORT INFORMATION
  Report Type: Spontaneous
  Country: US (occurrence: US)
  Receive Date: 20240208
  Receipt Date: 20240208
  Transmission Date: 20240410
  Serious: No
  Sender: FDA-Public Use
  Company Number: US-BRISTOL-MYERS SQUIBB COMPANY-2024-020847

PATIENT
  Age: 84 Year
  Sex: Male

DRUGS (1)
  1. POMALYST [Suspect]
     Active Substance: POMALIDOMIDE
     Indication: Plasma cell myeloma
     Route: 048

REACTIONS (7)
  - Headache [Unknown]
  - Back pain [Unknown]
  - Fatigue [Unknown]
  - Faeces soft [Unknown]
  - Fall [Unknown]
  - Skin laceration [Unknown]
  - Contusion [Unknown]

NARRATIVE: CASE EVENT DATE: 20231201
